FAERS Safety Report 25533209 (Version 2)
Quarter: 2025Q3

REPORT INFORMATION
  Report Type: Spontaneous
  Country: JP (occurrence: JP)
  Receive Date: 20250709
  Receipt Date: 20250802
  Transmission Date: 20251021
  Serious: Yes (Hospitalization, Other)
  Sender: ALEXION PHARMACEUTICALS
  Company Number: JP-ASTRAZENECA-202506JPN027594JP

PATIENT
  Age: 40 Decade
  Sex: Male

DRUGS (2)
  1. DAPAGLIFLOZIN [Suspect]
     Active Substance: DAPAGLIFLOZIN
     Route: 065
  2. LOKELMA [Suspect]
     Active Substance: SODIUM ZIRCONIUM CYCLOSILICATE
     Route: 065

REACTIONS (6)
  - Hyperkalaemia [Unknown]
  - Cardiac failure [Unknown]
  - Chronic kidney disease [Unknown]
  - Pain [Unknown]
  - Mitochondrial cardiomyopathy [Unknown]
  - Cellulitis [Unknown]
